FAERS Safety Report 7825212-6 (Version None)
Quarter: 2011Q4

REPORT INFORMATION
  Report Type: 
  Country: None (occurrence: None)
  Receive Date: 20111019
  Receipt Date: 20111007
  Transmission Date: 20120403
  Serious: Yes (Death)
  Sender: FDA-Public Use
  Company Number: JP-CELGENEUS-087-21660-11100341

PATIENT
  Age: 59 Year
  Sex: Female

DRUGS (6)
  1. DEXAMETHASONE SODIUM PHOSPHATE [Concomitant]
     Dosage: 6.6 MILLIGRAM
     Route: 041
     Dates: start: 20110907, end: 20110907
  2. ABRAXANE [Suspect]
     Indication: BREAST CANCER METASTATIC
     Dosage: 180 MILLIGRAM
     Route: 041
     Dates: start: 20110907, end: 20110907
  3. VITAMEDIN [Concomitant]
     Dosage: 3 CAPSULE
     Route: 048
     Dates: start: 20110907, end: 20110911
  4. GRANISETRON HCL [Concomitant]
     Dosage: 3 MILLIGRAM
     Route: 041
     Dates: start: 20110907, end: 20110907
  5. GOSHA-JINKI-GAN [Concomitant]
     Dosage: 5 GRAM
     Route: 048
     Dates: start: 20110907, end: 20110911
  6. SHAKUYAKU-KANZO-TO [Concomitant]
     Dosage: 5 GRAM
     Route: 048
     Dates: start: 20110907, end: 20110911

REACTIONS (1)
  - BREAST CANCER METASTATIC [None]
